FAERS Safety Report 25164533 (Version 1)
Quarter: 2025Q2

REPORT INFORMATION
  Report Type: Spontaneous
  Country: US (occurrence: US)
  Receive Date: 20250406
  Receipt Date: 20250406
  Transmission Date: 20250716
  Serious: No
  Sender: SANOFI AVENTIS
  Company Number: US-SA-2025SA095017

PATIENT
  Age: 16 Year
  Sex: Male
  Weight: 63.82 kg

DRUGS (13)
  1. DUPIXENT [Suspect]
     Active Substance: DUPILUMAB
     Indication: Product used for unknown indication
     Route: 058
     Dates: start: 20250319, end: 20250319
  2. ADAPALENE [Concomitant]
     Active Substance: ADAPALENE
  3. BETAMETHASONE VALERATE [Concomitant]
     Active Substance: BETAMETHASONE VALERATE
  4. TRIAMCINOLONE ACETONIDE [Concomitant]
     Active Substance: TRIAMCINOLONE ACETONIDE
  5. TRIANEX [Concomitant]
     Active Substance: TRIAMCINOLONE ACETONIDE
  6. MUPIROCIN [Concomitant]
     Active Substance: MUPIROCIN
  7. TACROLIMUS [Concomitant]
     Active Substance: TACROLIMUS
  8. KETOCONAZOLE [Concomitant]
     Active Substance: KETOCONAZOLE
  9. MOMETASONE FUROATE [Concomitant]
     Active Substance: MOMETASONE FUROATE
  10. CLINDAMYCIN HYDROCHLORIDE [Concomitant]
     Active Substance: CLINDAMYCIN HYDROCHLORIDE
  11. BENZONATATE [Concomitant]
     Active Substance: BENZONATATE
  12. GUAIFENESIN [Concomitant]
     Active Substance: GUAIFENESIN
  13. PSEUDOEPHEDRINE HYDROCHLORIDE [Concomitant]
     Active Substance: PSEUDOEPHEDRINE HYDROCHLORIDE

REACTIONS (1)
  - Injection site vesicles [Recovered/Resolved]

NARRATIVE: CASE EVENT DATE: 20250319
